FAERS Safety Report 4507338-8 (Version None)
Quarter: 2004Q4

REPORT INFORMATION
  Report Type: 
  Country: None (occurrence: None)
  Receive Date: 20041118
  Receipt Date: 20041112
  Transmission Date: 20050328
  Serious: Yes (Death, Other)
  Sender: FDA-Public Use
  Company Number: 200421010BWH

PATIENT
  Sex: 0

DRUGS (1)
  1. TRASYLOL [Suspect]
     Dates: start: 20041101

REACTIONS (1)
  - ANAPHYLACTIC REACTION [None]
